FAERS Safety Report 15148420 (Version 1)
Quarter: 2018Q3

REPORT INFORMATION
  Report Type: Spontaneous
  Country: US (occurrence: US)
  Receive Date: 20180619
  Receipt Date: 20180619
  Transmission Date: 20181010
  Serious: No
  Sender: FDA-Public Use
  Company Number: None

PATIENT
  Age: 83 Year
  Sex: Female

DRUGS (1)
  1. AFINITOR [Suspect]
     Active Substance: EVEROLIMUS
     Indication: BREAST CANCER FEMALE
     Dosage: DATE:1015201 TO PRESENT
     Route: 048

REACTIONS (4)
  - Peripheral swelling [None]
  - Rash pruritic [None]
  - Dry skin [None]
  - Joint swelling [None]

NARRATIVE: CASE EVENT DATE: 20180215
